FAERS Safety Report 25246750 (Version 1)
Quarter: 2025Q2

REPORT INFORMATION
  Report Type: Spontaneous
  Country: NO (occurrence: NO)
  Receive Date: 20250428
  Receipt Date: 20250428
  Transmission Date: 20250716
  Serious: Yes (Life-Threatening, Hospitalization, Other)
  Sender: NOVARTIS
  Company Number: None

PATIENT
  Age: 78 Year
  Sex: Female
  Weight: 67 kg

DRUGS (3)
  1. KISQALI [Suspect]
     Active Substance: RIBOCICLIB SUCCINATE
     Indication: Neoplasm malignant
     Dosage: 600 MG, QD
     Route: 048
     Dates: start: 202502, end: 20250320
  2. FULVESTRANT [Concomitant]
     Active Substance: FULVESTRANT
     Indication: Breast cancer
     Route: 065
     Dates: start: 202502
  3. ZOPICLONE [Concomitant]
     Active Substance: ZOPICLONE
     Indication: Sleep disorder
     Route: 065

REACTIONS (2)
  - Renal failure [Recovered/Resolved]
  - Dehydration [Unknown]

NARRATIVE: CASE EVENT DATE: 20250307
